FAERS Safety Report 9578186 (Version 2)
Quarter: 2013Q4

REPORT INFORMATION
  Report Type: Spontaneous
  Country: US (occurrence: US)
  Receive Date: 20131001
  Receipt Date: 20131001
  Transmission Date: 20140711
  Serious: No
  Sender: FDA-Public Use
  Company Number: US-AMGEN-USASP2013009560

PATIENT
  Age: 50 Year
  Sex: Female

DRUGS (4)
  1. ENBREL [Suspect]
     Indication: RHEUMATOID ARTHRITIS
     Dosage: 50 MG, QWK
     Route: 058
     Dates: start: 20120706
  2. RELAFEN [Concomitant]
     Indication: ARTHRITIS
     Dosage: 500 UNK, BID
     Route: 048
     Dates: start: 20000503
  3. MTX                                /00113801/ [Concomitant]
     Indication: ARTHRITIS
     Dosage: 1 G, QWK
     Route: 048
     Dates: start: 20120907
  4. LEXAPRO [Concomitant]
     Indication: DEPRESSION
     Dosage: 1 G, QD
     Route: 048
     Dates: start: 2002

REACTIONS (6)
  - Pain in extremity [Not Recovered/Not Resolved]
  - Arthralgia [Not Recovered/Not Resolved]
  - Musculoskeletal pain [Not Recovered/Not Resolved]
  - Injection site bruising [Recovered/Resolved]
  - Injection site rash [Not Recovered/Not Resolved]
  - Injection site erythema [Not Recovered/Not Resolved]
